FAERS Safety Report 10246633 (Version 2)
Quarter: 2014Q3

REPORT INFORMATION
  Report Type: Spontaneous
  Country: FR (occurrence: FR)
  Receive Date: 20140619
  Receipt Date: 20140703
  Transmission Date: 20150326
  Serious: Yes (Death, Other)
  Sender: FDA-Public Use
  Company Number: FR-ASTRAZENECA-2014SE44732

PATIENT
  Age: 53 Year
  Sex: Male

DRUGS (11)
  1. DIFFU K [Suspect]
     Active Substance: POTASSIUM CHLORIDE
     Dates: start: 20140530, end: 20140530
  2. ISOPTIN [Suspect]
     Active Substance: VERAPAMIL HYDROCHLORIDE
     Route: 048
     Dates: start: 20140530, end: 20140530
  3. VITAMIN B1 B6 [Concomitant]
  4. DUPHALAC [Concomitant]
     Active Substance: LACTULOSE
  5. HYDROCORTISONE. [Suspect]
     Active Substance: HYDROCORTISONE
     Dates: start: 20140530, end: 20140530
  6. AVLOCARDYL [Concomitant]
     Active Substance: PROPRANOLOL HYDROCHLORIDE
     Dates: start: 20140527, end: 20140527
  7. ATACAND [Suspect]
     Active Substance: CANDESARTAN CILEXETIL
     Route: 048
     Dates: start: 20140530, end: 20140530
  8. PAROXETINE [Suspect]
     Active Substance: PAROXETINE\PAROXETINE HYDROCHLORIDE
     Dates: start: 20140530, end: 20140530
  9. NOVONORM [Suspect]
     Active Substance: REPAGLINIDE
     Route: 048
     Dates: start: 20140530, end: 20140530
  10. AVLOCARDYL [Concomitant]
     Active Substance: PROPRANOLOL HYDROCHLORIDE
     Dates: start: 20140528, end: 20140529
  11. EUPRESSYL [Suspect]
     Active Substance: URAPIDIL
     Route: 048
     Dates: start: 20140530, end: 20140530

REACTIONS (6)
  - Hypoglycaemia [Fatal]
  - Oxygen saturation decreased [Unknown]
  - Medication error [Fatal]
  - Cardiac arrest [Fatal]
  - Hypotension [Fatal]
  - Bradycardia [Fatal]

NARRATIVE: CASE EVENT DATE: 20140530
